FAERS Safety Report 14605281 (Version 1)
Quarter: 2018Q1

REPORT INFORMATION
  Report Type: Spontaneous
  Country: US (occurrence: US)
  Receive Date: 20180306
  Receipt Date: 20180306
  Transmission Date: 20180509
  Serious: No
  Sender: FDA-Public Use
  Company Number: US-TARO-2017TAR00500

PATIENT
  Age: 29 Year
  Sex: Female
  Weight: 71.2 kg

DRUGS (4)
  1. UNSPECIFIED VITAMIN C [Concomitant]
  2. UNSPECIFIED VITAMIN D [Concomitant]
  3. UNSPECIFIED PROBIOTIC [Concomitant]
     Indication: CANDIDA INFECTION
     Dosage: UNK
  4. TERCONAZOLE VAGINAL CREAM 0.4% [Suspect]
     Active Substance: TERCONAZOLE
     Indication: CANDIDA INFECTION
     Dosage: 1 DOSAGE UNITS, 1X/DAY AT BEDTIME
     Route: 067
     Dates: start: 20170523, end: 20170530

REACTIONS (2)
  - Candida infection [Unknown]
  - Drug ineffective [Unknown]

NARRATIVE: CASE EVENT DATE: 2017
